FAERS Safety Report 13070444 (Version 1)
Quarter: 2016Q4

REPORT INFORMATION
  Report Type: Other
  Country: US (occurrence: US)
  Receive Date: 20161229
  Receipt Date: 20161229
  Transmission Date: 20170207
  Serious: Yes (Other)
  Sender: FDA-Public Use
  Company Number: US-JUBILANT GENERICS LIMITED-1061355

PATIENT
  Age: 24 Month
  Sex: Female

DRUGS (11)
  1. FLUCONAZOLE. [Concomitant]
     Active Substance: FLUCONAZOLE
  2. LORAZEPAM. [Concomitant]
     Active Substance: LORAZEPAM
  3. ACYCLOVIR. [Concomitant]
     Active Substance: ACYCLOVIR
  4. URSODIOL. [Concomitant]
     Active Substance: URSODIOL
  5. MORPHINE [Concomitant]
     Active Substance: MORPHINE
  6. ONDANSETRON [Concomitant]
     Active Substance: ONDANSETRON
  7. LEVOFLOXACIN. [Suspect]
     Active Substance: LEVOFLOXACIN
  8. APREPITANT. [Concomitant]
     Active Substance: APREPITANT
  9. CYPROHEPTADINE. [Concomitant]
     Active Substance: CYPROHEPTADINE
  10. CHOLECALCIFEROL [Concomitant]
     Active Substance: CHOLECALCIFEROL
  11. OMEPRAZOLE. [Concomitant]
     Active Substance: OMEPRAZOLE

REACTIONS (2)
  - Hallucination [Recovered/Resolved]
  - Central nervous system stimulation [Recovered/Resolved]

NARRATIVE: CASE EVENT DATE: 20161213
